FAERS Safety Report 6191621-7 (Version None)
Quarter: 2009Q2

REPORT INFORMATION
  Report Type: 
  Country: None (occurrence: None)
  Receive Date: 20090515
  Receipt Date: 20090507
  Transmission Date: 20091009
  Serious: Yes (Other)
  Sender: FDA-Public Use
  Company Number: PHHY2009BR17633

PATIENT
  Sex: Male
  Weight: 70 kg

DRUGS (2)
  1. VOLTAREN RETARD [Suspect]
     Indication: SUTURE INSERTION
     Dosage: 100 MG, Q12H
     Route: 048
     Dates: start: 20090505, end: 20090506
  2. CEFAGEL [Concomitant]
     Indication: SUTURE INSERTION
     Dosage: 500 MG, Q6H
     Route: 048
     Dates: start: 20090505

REACTIONS (1)
  - DIARRHOEA [None]
